FAERS Safety Report 9910736 (Version 4)
Quarter: 2014Q2

REPORT INFORMATION
  Report Type: Report from Study
  Country: US (occurrence: US)
  Receive Date: 20140219
  Receipt Date: 20140523
  Transmission Date: 20141212
  Serious: Yes (Hospitalization, Other)
  Sender: FDA-Public Use
  Company Number: US-SA-2014SA015118

PATIENT
  Age: 59 Year
  Sex: Male

DRUGS (4)
  1. AUBAGIO [Suspect]
     Indication: MULTIPLE SCLEROSIS
     Route: 048
     Dates: start: 20140129
  2. AUBAGIO [Suspect]
     Indication: MULTIPLE SCLEROSIS
     Route: 048
  3. AUBAGIO [Suspect]
     Indication: MULTIPLE SCLEROSIS
     Route: 048
  4. AUBAGIO [Suspect]
     Indication: MULTIPLE SCLEROSIS
     Route: 048
     Dates: end: 20140428

REACTIONS (11)
  - Gait disturbance [Unknown]
  - Investigation [Unknown]
  - Cough [Not Recovered/Not Resolved]
  - Asthenia [Unknown]
  - Back pain [Unknown]
  - Fall [Unknown]
  - Balance disorder [Unknown]
  - Hypoaesthesia [Unknown]
  - Multiple sclerosis [Unknown]
  - Nuclear magnetic resonance imaging abnormal [Unknown]
  - Drug dose omission [Unknown]
